FAERS Safety Report 8891124 (Version 1)
Quarter: 2012Q4

REPORT INFORMATION
  Report Type: 
  Country: ES (occurrence: ES)
  Receive Date: 20121107
  Receipt Date: 20121107
  Transmission Date: 20130627
  Serious: Yes (Hospitalization)
  Sender: FDA-Public Use
  Company Number: ES-PFIZER INC-2012278370

PATIENT
  Age: 44 Year
  Sex: Female
  Weight: 54.9 kg

DRUGS (12)
  1. IBUPROFEN [Suspect]
     Indication: PRODUCT USED FOR UNKNOWN INDICATION
     Dosage: every 4-6 hours
     Route: 065
     Dates: start: 20120921, end: 20121008
  2. VX-950 [Concomitant]
     Indication: HEPATITIS C
     Route: 048
     Dates: start: 20121011
  3. VX-950 [Concomitant]
     Route: 048
     Dates: start: 20120914, end: 20121008
  4. RIBAVIRIN [Concomitant]
     Indication: PRODUCT USED FOR UNKNOWN INDICATION
     Route: 048
     Dates: start: 20121011
  5. RIBAVIRIN [Concomitant]
     Route: 048
     Dates: start: 20120914, end: 20121008
  6. PEGINTERFERON ALFA-2A [Concomitant]
     Indication: HEPATITIS C
     Route: 058
     Dates: start: 20120914, end: 20121008
  7. SUMIAL [Concomitant]
     Route: 065
     Dates: start: 20121105
  8. DUPHALAC [Concomitant]
     Route: 065
     Dates: start: 20120921
  9. OMEPRAZOLE [Concomitant]
     Route: 065
     Dates: start: 20120921
  10. TENOFOVIR [Concomitant]
     Route: 065
  11. EFAVIRENZ [Concomitant]
     Route: 065
  12. LAMIVUDINE [Concomitant]
     Route: 065

REACTIONS (1)
  - Mallory-Weiss syndrome [Recovered/Resolved]
